FAERS Safety Report 14632466 (Version 2)
Quarter: 2018Q2

REPORT INFORMATION
  Report Type: Report from Study
  Country: None (occurrence: AU)
  Receive Date: 20180313
  Receipt Date: 20180413
  Transmission Date: 20180711
  Serious: Yes (Hospitalization)
  Sender: FDA-Public Use
  Company Number: AU-ABBVIE-18P-008-2279575-00

PATIENT
  Age: 72 Year
  Sex: Female
  Weight: 80 kg

DRUGS (29)
  1. VENETOCLAX. [Suspect]
     Active Substance: VENETOCLAX
     Indication: PLASMA CELL MYELOMA
     Route: 048
     Dates: start: 20170529, end: 20171127
  2. COLOXYL [Concomitant]
     Active Substance: DOCUSATE SODIUM
     Indication: CONSTIPATION
     Route: 048
     Dates: start: 20170605
  3. BORTEZOMIB [Suspect]
     Active Substance: BORTEZOMIB
     Dosage: CYCLES 9 AND BEYOND, 35-DAY CYCLE LENGTH: DAYS 1, 8, 15 AND 22
     Route: 058
     Dates: start: 20171113, end: 20171204
  4. BORTEZOMIB [Suspect]
     Active Substance: BORTEZOMIB
     Dosage: CYCLES 9 AND BEYOND, 35-DAY CYCLE LENGTH: DAYS 1, 8, 15 AND 22
     Route: 058
     Dates: start: 20171227, end: 20171227
  5. BORTEZOMIB [Suspect]
     Active Substance: BORTEZOMIB
     Dosage: CYCLES 9 AND BEYOND, 35-DAY CYCLE LENGTH: DAYS 1, 8, 15 AND 22
     Route: 058
     Dates: start: 20180312
  6. BORTEZOMIB [Suspect]
     Active Substance: BORTEZOMIB
     Dosage: CYCLES 9 AND BEYOND, 35-DAY CYCLE LENGTH: DAYS 1, 8, 15 AND 22
     Route: 058
     Dates: start: 20180109, end: 20180212
  7. DEXAMETHASONE. [Suspect]
     Active Substance: DEXAMETHASONE
     Dosage: CYCLES 9 AND BEYOND, 35-DAY CYCLE LENGTH: DAYS 1, 2, 8, 9, 15, 16, 22 AND 23
     Route: 048
     Dates: start: 20171113
  8. VALTREX [Concomitant]
     Active Substance: VALACYCLOVIR HYDROCHLORIDE
     Indication: ANTIVIRAL PROPHYLAXIS
     Route: 048
     Dates: start: 20170518
  9. RESPRIM [Concomitant]
     Active Substance: SULFAMETHOXAZOLE\TRIMETHOPRIM
     Indication: INFECTION PROPHYLAXIS
     Route: 048
     Dates: start: 20170518
  10. MOVICOL [Concomitant]
     Active Substance: POLYETHYLENE GLYCOL 3350\POTASSIUM CHLORIDE\SODIUM BICARBONATE\SODIUM CHLORIDE
     Indication: CONSTIPATION
     Route: 048
     Dates: start: 20170605
  11. FLUDROCORTISONE [Concomitant]
     Active Substance: FLUDROCORTISONE
     Indication: ORTHOSTATIC HYPOTENSION
     Route: 048
     Dates: start: 20171003
  12. DEXAMETHASONE. [Suspect]
     Active Substance: DEXAMETHASONE
     Indication: PLASMA CELL MYELOMA
     Dosage: CYCLES 1  8, 21-DAY CYCLE LENGTH: DAYS 1, 2, 4, 5, 8, 9, 11 AND 12
     Route: 048
     Dates: start: 20170529, end: 20170630
  13. DEXAMETHASONE. [Suspect]
     Active Substance: DEXAMETHASONE
     Indication: CHEMOTHERAPY SINGLE AGENT SYSTEMIC
     Dosage: CYCLES 1  8, 21-DAY CYCLE LENGTH: DAYS 1, 2, 4, 5, 8, 9, 11 AND 12
     Route: 048
     Dates: start: 20170710, end: 20171104
  14. RANITIDINE. [Concomitant]
     Active Substance: RANITIDINE
     Indication: GASTROOESOPHAGEAL REFLUX PROPHYLAXIS
     Route: 048
     Dates: start: 20170605
  15. TEMAZEPAM. [Concomitant]
     Active Substance: TEMAZEPAM
     Indication: INSOMNIA
     Route: 048
     Dates: start: 20170622
  16. MAXOLON [Concomitant]
     Active Substance: METOCLOPRAMIDE HYDROCHLORIDE
     Indication: PROPHYLAXIS OF NAUSEA AND VOMITING
     Route: 048
     Dates: start: 20171215
  17. VENETOCLAX. [Suspect]
     Active Substance: VENETOCLAX
     Route: 048
     Dates: start: 20180312
  18. BORTEZOMIB [Suspect]
     Active Substance: BORTEZOMIB
     Dosage: CYCLES 1  8, 21-DAY CYCLE LENGTH: DAYS 1, 4, 8 AND 11
     Route: 058
     Dates: start: 20170831, end: 20171023
  19. ZOMETA [Concomitant]
     Active Substance: ZOLEDRONIC ACID
     Indication: PROPHYLAXIS
     Route: 042
     Dates: start: 20170601
  20. MAXOLON [Concomitant]
     Active Substance: METOCLOPRAMIDE HYDROCHLORIDE
     Indication: PROPHYLAXIS OF NAUSEA AND VOMITING
     Route: 048
     Dates: start: 20170529, end: 20171213
  21. IMODIUM [Concomitant]
     Active Substance: LOPERAMIDE HYDROCHLORIDE
     Indication: DIARRHOEA
     Route: 048
     Dates: start: 201707
  22. VENETOCLAX. [Suspect]
     Active Substance: VENETOCLAX
     Route: 048
     Dates: start: 20171221, end: 20180223
  23. BORTEZOMIB [Suspect]
     Active Substance: BORTEZOMIB
     Indication: PLASMA CELL MYELOMA
     Dosage: CYCLES 1  8, 21-DAY CYCLE LENGTH: DAYS 1, 4, 8 AND 11
     Route: 058
     Dates: start: 20170529, end: 20170629
  24. BORTEZOMIB [Suspect]
     Active Substance: BORTEZOMIB
     Dosage: CYCLES 1  8, 21-DAY CYCLE LENGTH: DAYS 1, 4, 8 AND 11
     Route: 058
     Dates: start: 20170710, end: 20170828
  25. PANADOL [Concomitant]
     Active Substance: ACETAMINOPHEN
     Indication: MUSCULOSKELETAL PAIN
     Route: 048
     Dates: start: 20170910
  26. ESOMEPRAZOLE [Concomitant]
     Active Substance: ESOMEPRAZOLE
     Indication: ANTACID THERAPY
     Route: 048
     Dates: start: 20170731, end: 20171213
  27. ESOMEPRAZOLE [Concomitant]
     Active Substance: ESOMEPRAZOLE
     Indication: GASTROOESOPHAGEAL REFLUX PROPHYLAXIS
     Route: 048
     Dates: start: 20171215
  28. BORTEZOMIB [Suspect]
     Active Substance: BORTEZOMIB
     Dosage: CYCLES 1  8, 21-DAY CYCLE LENGTH: DAYS 1, 4, 8 AND 11
     Route: 058
     Dates: start: 20171026, end: 20171103
  29. ALLOPURINOL. [Concomitant]
     Active Substance: ALLOPURINOL
     Indication: PROPHYLAXIS
     Route: 048
     Dates: start: 20170515

REACTIONS (1)
  - Orthostatic hypotension [Recovered/Resolved]

NARRATIVE: CASE EVENT DATE: 20180304
